FAERS Safety Report 8194049-3 (Version None)
Quarter: 2012Q1

REPORT INFORMATION
  Report Type: 
  Country: None (occurrence: None)
  Receive Date: 20120308
  Receipt Date: 20120301
  Transmission Date: 20120608
  Serious: Yes (Hospitalization, Disabling, Other)
  Sender: FDA-Public Use
  Company Number: US-MERCK-1102USA01523

PATIENT
  Age: 53 Year
  Sex: Female
  Weight: 125 kg

DRUGS (9)
  1. PREDNISONE [Concomitant]
     Indication: ARTHRITIS
     Route: 048
  2. VITAMIN D (UNSPECIFIED) [Concomitant]
     Route: 048
  3. CALCIUM (UNSPECIFIED) [Concomitant]
     Route: 048
  4. DICLOFENAC [Concomitant]
     Indication: ARTHRITIS
     Route: 048
  5. FOSAMAX [Suspect]
     Indication: OSTEOPOROSIS
     Route: 048
     Dates: start: 19950101, end: 20090101
  6. ASCORBIC ACID [Concomitant]
     Route: 048
  7. DICLOFENAC [Concomitant]
     Indication: INFLAMMATION
     Route: 048
  8. [THERAPY UNSPECIFIED] [Concomitant]
     Indication: HYPERCHOLESTEROLAEMIA
     Route: 048
     Dates: start: 20030101
  9. ALENDRONATE SODIUM [Suspect]
     Indication: OSTEOPOROSIS
     Route: 048
     Dates: start: 20080801

REACTIONS (83)
  - DEPRESSION [None]
  - CHOLELITHIASIS [None]
  - LYMPHADENOPATHY [None]
  - DEVICE FAILURE [None]
  - EYE DISORDER [None]
  - DIZZINESS [None]
  - SEPSIS SYNDROME [None]
  - URINARY TRACT INFECTION ENTEROCOCCAL [None]
  - UMBILICAL HERNIA [None]
  - TYPE 2 DIABETES MELLITUS [None]
  - URINARY INCONTINENCE [None]
  - OEDEMA [None]
  - ANXIETY [None]
  - LIGAMENT RUPTURE [None]
  - FEMUR FRACTURE [None]
  - DIARRHOEA [None]
  - CARPAL TUNNEL SYNDROME [None]
  - FIBROMYALGIA [None]
  - PYREXIA [None]
  - STAPHYLOCOCCAL INFECTION [None]
  - OSTEOARTHRITIS [None]
  - SWELLING [None]
  - INTERVERTEBRAL DISC DEGENERATION [None]
  - LOW TURNOVER OSTEOPATHY [None]
  - ADVERSE EVENT [None]
  - CONSTIPATION [None]
  - HYPOAESTHESIA [None]
  - WOUND INFECTION STAPHYLOCOCCAL [None]
  - HAEMANGIOMA OF LIVER [None]
  - RESTLESS LEGS SYNDROME [None]
  - PATELLA FRACTURE [None]
  - VENOUS INSUFFICIENCY [None]
  - SOFT TISSUE DISORDER [None]
  - PNEUMONIA [None]
  - OEDEMA PERIPHERAL [None]
  - FUNGAL INFECTION [None]
  - ARTHRITIS [None]
  - FALL [None]
  - CATARACT [None]
  - STRESS FRACTURE [None]
  - COMA [None]
  - RENAL FAILURE ACUTE [None]
  - LEFT VENTRICULAR END-DIASTOLIC PRESSURE INCREASED [None]
  - IRON DEFICIENCY ANAEMIA [None]
  - SKIN DISORDER [None]
  - VERTIGO [None]
  - ACUTE RESPIRATORY FAILURE [None]
  - ABDOMINAL PAIN [None]
  - FRACTURE NONUNION [None]
  - NEUROPATHY PERIPHERAL [None]
  - MULTI-ORGAN FAILURE [None]
  - HERPES SIMPLEX OPHTHALMIC [None]
  - RENAL FAILURE CHRONIC [None]
  - ADVERSE DRUG REACTION [None]
  - METABOLIC ACIDOSIS [None]
  - BLINDNESS [None]
  - HYPOKALAEMIA [None]
  - HYPERGLYCAEMIA [None]
  - SEPTIC SHOCK [None]
  - SEDATION [None]
  - BLISTER [None]
  - URINARY TRACT INFECTION [None]
  - UPPER RESPIRATORY TRACT INFECTION [None]
  - SYSTOLIC HYPERTENSION [None]
  - LIMB DEFORMITY [None]
  - CHOLECYSTITIS [None]
  - ORAL HERPES [None]
  - ENCEPHALOPATHY [None]
  - MACULAR DEGENERATION [None]
  - ARTHROPATHY [None]
  - SKIN ULCER [None]
  - RESPIRATORY ACIDOSIS [None]
  - DRUG HYPERSENSITIVITY [None]
  - CELLULITIS [None]
  - MYALGIA [None]
  - OBESITY [None]
  - SEASONAL ALLERGY [None]
  - HAEMORRHOIDS [None]
  - GASTROOESOPHAGEAL REFLUX DISEASE [None]
  - JOINT SWELLING [None]
  - SLEEP APNOEA SYNDROME [None]
  - WOUND [None]
  - WOUND INFECTION [None]
